FAERS Safety Report 11316124 (Version 2)
Quarter: 2015Q3

REPORT INFORMATION
  Report Type: Report from Study
  Country: US (occurrence: US)
  Receive Date: 20150728
  Receipt Date: 20150907
  Transmission Date: 20151125
  Serious: Yes (Hospitalization, Other)
  Sender: FDA-Public Use
  Company Number: US-BIOGENIDEC-2015BI078669

PATIENT
  Sex: Female

DRUGS (2)
  1. TYSABRI [Suspect]
     Active Substance: NATALIZUMAB
     Indication: MULTIPLE SCLEROSIS
     Route: 042
  2. TYSABRI [Suspect]
     Active Substance: NATALIZUMAB
     Indication: MULTIPLE SCLEROSIS
     Route: 042
     Dates: start: 20120502

REACTIONS (10)
  - Cholecystectomy [Unknown]
  - Procedural complication [Not Recovered/Not Resolved]
  - Pancreatitis [Unknown]
  - Cough [Unknown]
  - Device leakage [Unknown]
  - Pain [Unknown]
  - Phantom pain [Unknown]
  - Memory impairment [Unknown]
  - Emotional distress [Unknown]
  - Crying [Unknown]
